FAERS Safety Report 5762798-X (Version None)
Quarter: 2008Q2

REPORT INFORMATION
  Report Type: 
  Country: None (occurrence: None)
  Receive Date: 20080528
  Receipt Date: 20080225
  Transmission Date: 20081010
  Serious: Yes (Other)
  Sender: FDA-Public Use
  Company Number: PHEH2008US02179

PATIENT
  Age: 60 Year
  Sex: Female
  Weight: 72.6 kg

DRUGS (12)
  1. TASIGNA [Suspect]
     Indication: SYSTEMIC MASTOCYTOSIS
     Dosage: 400 MG, BID, ORAL
     Route: 048
     Dates: start: 20071228, end: 20080115
  2. LIPITOR [Concomitant]
  3. LEVOTHYROXINE SODIUM [Concomitant]
  4. MARINOL [Concomitant]
  5. ALPRAZOLAM [Concomitant]
  6. ZANTAC [Concomitant]
  7. HYDROXYZINE [Concomitant]
  8. BENADRYL ^WARNER-LAMBERT^ /USA/ (DIPHENHYDRAMINE HYDROCHLORIDE) [Concomitant]
  9. DESOXIMETASONE (DESOXIMETASONE) [Concomitant]
  10. HYDROCORTISONE [Concomitant]
  11. ACETAMINOPHEN [Concomitant]
  12. MULTIIPLE VITAMINS (ASCORBIC ACID, ERGOCALCIFEROL, FOLIC ACID, RETINOL [Concomitant]

REACTIONS (7)
  - ALANINE AMINOTRANSFERASE INCREASED [None]
  - ARTHRALGIA [None]
  - ASPARTATE AMINOTRANSFERASE INCREASED [None]
  - BLOOD ALKALINE PHOSPHATASE INCREASED [None]
  - BLOOD BILIRUBIN INCREASED [None]
  - LIVER FUNCTION TEST ABNORMAL [None]
  - MYALGIA [None]
